FAERS Safety Report 8353140-9 (Version None)
Quarter: 2012Q2

REPORT INFORMATION
  Report Type: 
  Country: None (occurrence: None)
  Receive Date: 20120511
  Receipt Date: 20120508
  Transmission Date: 20120825
  Serious: Yes (Other)
  Sender: FDA-Public Use
  Company Number: US-PFIZER INC-2012079446

PATIENT
  Sex: Female

DRUGS (6)
  1. SEROQUEL [Concomitant]
  2. ZOLOFT [Suspect]
     Indication: AFFECTIVE DISORDER
  3. XANAX [Concomitant]
  4. VALIUM [Concomitant]
  5. ZOLOFT [Suspect]
     Indication: POST-TRAUMATIC STRESS DISORDER
     Dosage: 150 MG, 1X/DAY
     Route: 048
  6. BUSPAR [Concomitant]

REACTIONS (2)
  - CONVERSION DISORDER [None]
  - CONVULSION [None]
